FAERS Safety Report 5242408-0 (Version None)
Quarter: 2007Q1

REPORT INFORMATION
  Report Type: 
  Country: None (occurrence: None)
  Receive Date: 20070221
  Receipt Date: 20070212
  Transmission Date: 20070707
  Serious: Yes (Hospitalization)
  Sender: FDA-Public Use
  Company Number: US-BRISTOL-MYERS SQUIBB COMPANY-13676895

PATIENT
  Age: 68 Year
  Sex: Male

DRUGS (4)
  1. SUSTIVA [Suspect]
     Indication: HIV INFECTION
  2. APTIVUS [Suspect]
     Indication: HIV INFECTION
     Dates: start: 20051201
  3. RITONAVIR [Suspect]
     Indication: HIV INFECTION
     Dates: start: 20051201
  4. ZIAGEN [Suspect]
     Indication: HIV INFECTION

REACTIONS (4)
  - DIARRHOEA [None]
  - LIVER FUNCTION TEST ABNORMAL [None]
  - LYMPHOCYTE COUNT INCREASED [None]
  - THROMBOCYTOPENIA [None]
